FAERS Safety Report 10163604 (Version 1)
Quarter: 2014Q2

REPORT INFORMATION
  Report Type: Spontaneous
  Country: IT (occurrence: IT)
  Receive Date: 20140509
  Receipt Date: 20140509
  Transmission Date: 20141212
  Serious: Yes (Other)
  Sender: FDA-Public Use
  Company Number: PHHY2014IT054464

PATIENT
  Age: 64 Year
  Sex: Male

DRUGS (3)
  1. RIBAVIRIN [Suspect]
     Indication: HEPATIC CIRRHOSIS
     Dosage: 1000 MG, UNK
     Dates: start: 201304
  2. PEG INF [Suspect]
     Indication: HEPATIC CIRRHOSIS
     Dosage: 180 UG/WEEK
     Dates: start: 201304
  3. TELAPREVIR [Suspect]
     Indication: HEPATIC CIRRHOSIS
     Dosage: 2250 MG, UNK
     Dates: start: 201304

REACTIONS (2)
  - Rash pustular [Recovered/Resolved]
  - Pruritus [Recovered/Resolved]
